FAERS Safety Report 14204855 (Version 2)
Quarter: 2018Q1

REPORT INFORMATION
  Report Type: Spontaneous
  Country: FR (occurrence: FR)
  Receive Date: 20171120
  Receipt Date: 20180122
  Transmission Date: 20180508
  Serious: Yes (Hospitalization)
  Sender: FDA-Public Use
  Company Number: FR-ABBVIE-17P-056-2168246-00

PATIENT
  Age: 19 Year
  Sex: Male

DRUGS (4)
  1. LEPTICUR [Suspect]
     Active Substance: TROPATEPINE HYDROCHLORIDE
     Indication: PRODUCT USED FOR UNKNOWN INDICATION
     Route: 048
  2. RISPERDAL [Suspect]
     Active Substance: RISPERIDONE
     Indication: PRODUCT USED FOR UNKNOWN INDICATION
     Route: 048
  3. VALIUM [Suspect]
     Active Substance: DIAZEPAM
     Indication: PRODUCT USED FOR UNKNOWN INDICATION
     Dosage: 30 DROPS/DAY
     Route: 048
  4. DEPAKOTE [Suspect]
     Active Substance: DIVALPROEX SODIUM
     Indication: PRODUCT USED FOR UNKNOWN INDICATION
     Route: 048
     Dates: start: 200907

REACTIONS (6)
  - Cholelithiasis [Recovered/Resolved]
  - Nausea [Recovered/Resolved]
  - Leukocytosis [Recovered/Resolved]
  - Cholecystitis acute [Recovered/Resolved]
  - Constipation [Recovered/Resolved]
  - C-reactive protein [Recovered/Resolved]

NARRATIVE: CASE EVENT DATE: 20090910
